FAERS Safety Report 11142465 (Version 3)
Quarter: 2015Q3

REPORT INFORMATION
  Report Type: Spontaneous
  Country: GB (occurrence: GB)
  Receive Date: 20150527
  Receipt Date: 20150714
  Transmission Date: 20151125
  Serious: Yes (Death)
  Sender: FDA-Public Use
  Company Number: GB-INCYTE CORPORATION-2015IN002214

PATIENT
  Age: 76 Year
  Sex: Female

DRUGS (1)
  1. JAKAFI [Suspect]
     Active Substance: RUXOLITINIB
     Indication: MYELOFIBROSIS
     Dosage: 15 MG, BID
     Route: 065
     Dates: start: 20130215

REACTIONS (4)
  - Myelofibrosis [Fatal]
  - Acute myeloid leukaemia [Fatal]
  - Sepsis [Fatal]
  - Anaemia [Unknown]

NARRATIVE: CASE EVENT DATE: 20140306
